FAERS Safety Report 22393565 (Version 1)
Quarter: 2023Q2

REPORT INFORMATION
  Report Type: Other
  Country: US (occurrence: None)
  Receive Date: 20230601
  Receipt Date: 20230601
  Transmission Date: 20230721
  Serious: Yes (Other)
  Sender: FDA-Public Use
  Company Number: US-ROCHE-3359414

PATIENT

DRUGS (2)
  1. TRASTUZUMAB [Suspect]
     Active Substance: TRASTUZUMAB
     Indication: HER2 positive breast cancer
     Route: 065
  2. PALBOCICLIB [Suspect]
     Active Substance: PALBOCICLIB
     Indication: HER2 positive breast cancer
     Dosage: 1 TO 21 OF A 28 DAY CYCLE
     Route: 048

REACTIONS (6)
  - Lymphopenia [Unknown]
  - Neutropenia [Unknown]
  - Leukopenia [Unknown]
  - Anaemia [Unknown]
  - Thrombocytopenia [Unknown]
  - Embolism [Unknown]
